FAERS Safety Report 13672555 (Version 2)
Quarter: 2017Q3

REPORT INFORMATION
  Report Type: Spontaneous
  Country: FR (occurrence: FR)
  Receive Date: 20170621
  Receipt Date: 20170706
  Transmission Date: 20171127
  Serious: Yes (Hospitalization)
  Sender: FDA-Public Use
  Company Number: FR-PFIZER INC-2017261689

PATIENT
  Age: 64 Year
  Sex: Female

DRUGS (11)
  1. VITAMIN C [Concomitant]
     Active Substance: ASCORBIC ACID
     Indication: VITAMIN SUPPLEMENTATION
     Dosage: UNK
     Dates: start: 20170411
  2. FOLIC ACID. [Concomitant]
     Active Substance: FOLIC ACID
     Indication: VITAMIN SUPPLEMENTATION
     Dosage: UNK
     Dates: start: 20170411
  3. VITAMIN PP [Concomitant]
     Indication: VITAMIN SUPPLEMENTATION
     Dosage: UNK
     Dates: start: 20170411
  4. PRINCI B [Concomitant]
     Active Substance: PYRIDOXINE\THIAMINE
     Indication: VITAMIN SUPPLEMENTATION
     Dosage: UNK
     Dates: start: 20170411
  5. XARELTO [Suspect]
     Active Substance: RIVAROXABAN
     Indication: THROMBOPHLEBITIS
     Dosage: UNK
     Route: 048
     Dates: start: 20170512, end: 20170516
  6. LYRICA [Suspect]
     Active Substance: PREGABALIN
     Dosage: UNK
     Route: 048
     Dates: start: 20170511
  7. INNOHEP [Suspect]
     Active Substance: TINZAPARIN SODIUM
     Indication: THROMBOPHLEBITIS
     Dosage: UNK
     Route: 058
     Dates: start: 20170417, end: 20170512
  8. INNOHEP [Suspect]
     Active Substance: TINZAPARIN SODIUM
     Dosage: UNK
     Route: 058
     Dates: start: 20170516, end: 20170524
  9. SERESTA [Concomitant]
     Active Substance: OXAZEPAM
     Dosage: UNK
     Dates: start: 20170411, end: 20170512
  10. DIFFU K [Concomitant]
     Active Substance: POTASSIUM CHLORIDE
     Dosage: UNK
     Dates: start: 20170413
  11. GLYCEROL\PARAFFIN [Concomitant]
     Active Substance: GLYCERIN\PARAFFIN
     Dosage: UNK

REACTIONS (1)
  - Henoch-Schonlein purpura [Recovering/Resolving]

NARRATIVE: CASE EVENT DATE: 20170515
